FAERS Safety Report 25358656 (Version 1)
Quarter: 2025Q2

REPORT INFORMATION
  Report Type: Spontaneous
  Country: CO (occurrence: CO)
  Receive Date: 20250526
  Receipt Date: 20250526
  Transmission Date: 20250716
  Serious: Yes (Other)
  Sender: UNICHEM
  Company Number: CO-UNICHEM LABORATORIES LIMITED-UNI-2025-CO-002323

PATIENT

DRUGS (4)
  1. PRIMAQUINE [Suspect]
     Active Substance: PRIMAQUINE
     Indication: Plasmodium vivax infection
     Route: 065
  2. PRIMAQUINE [Suspect]
     Active Substance: PRIMAQUINE
     Route: 065
  3. CHLOROQUINE [Concomitant]
     Active Substance: CHLOROQUINE
     Indication: Plasmodium vivax infection
     Route: 065
  4. CHLOROQUINE [Concomitant]
     Active Substance: CHLOROQUINE
     Route: 065

REACTIONS (1)
  - Methaemoglobinaemia [Recovering/Resolving]
